FAERS Safety Report 6874947-0 (Version None)
Quarter: 2010Q2

REPORT INFORMATION
  Report Type: 
  Country: None (occurrence: None)
  Receive Date: 20100610
  Receipt Date: 20100125
  Transmission Date: 20101027
  Serious: Yes (Other)
  Sender: FDA-Public Use
  Company Number: 2010SP005584

PATIENT
  Age: 23 Year
  Sex: Female

DRUGS (2)
  1. SAPHRIS [Suspect]
     Indication: BIPOLAR DISORDER
     Dosage: 10 MG;BID;SL
     Dates: start: 20100113, end: 20100113
  2. LEXAPRO [Concomitant]

REACTIONS (5)
  - EXTRAPYRAMIDAL DISORDER [None]
  - FACIAL PALSY [None]
  - JAW DISORDER [None]
  - PARAESTHESIA [None]
  - SWOLLEN TONGUE [None]
